FAERS Safety Report 5013819-3 (Version None)
Quarter: 2006Q2

REPORT INFORMATION
  Report Type: 
  Country: None (occurrence: None)
  Receive Date: 20060525
  Receipt Date: 20060512
  Transmission Date: 20061013
  Serious: Yes (Disabling, Other)
  Sender: FDA-Public Use
  Company Number: 2006045092

PATIENT
  Age: 51 Year
  Sex: Female
  Weight: 43 kg

DRUGS (6)
  1. IRINOTECAN HYDROCHLORIDE                SOLUTION, STERILE [Suspect]
     Indication: PANCREATIC CARCINOMA
     Dosage: SEE IMAGE
     Route: 042
     Dates: start: 20050707, end: 20050826
  2. IRINOTECAN HYDROCHLORIDE                SOLUTION, STERILE [Suspect]
     Indication: PANCREATIC CARCINOMA
     Dosage: SEE IMAGE
     Route: 042
     Dates: start: 20050909, end: 20050926
  3. IRINOTECAN HYDROCHLORIDE                SOLUTION, STERILE [Suspect]
     Indication: PANCREATIC CARCINOMA
     Dosage: SEE IMAGE
     Route: 042
     Dates: start: 20051118, end: 20051216
  4. NEUPOGEN [Concomitant]
  5. URSO 250 [Concomitant]
  6. DECADRON SRC [Concomitant]

REACTIONS (7)
  - DIARRHOEA [None]
  - HEPATIC STEATOSIS [None]
  - LEUKOPENIA [None]
  - MALIGNANT ASCITES [None]
  - MALIGNANT NEOPLASM PROGRESSION [None]
  - MULTI-ORGAN FAILURE [None]
  - PANCREATIC CARCINOMA [None]
